FAERS Safety Report 5253351-5 (Version None)
Quarter: 2007Q1

REPORT INFORMATION
  Report Type: 
  Country: None (occurrence: None)
  Receive Date: 20070301
  Receipt Date: 20070221
  Transmission Date: 20070707
  Serious: No
  Sender: FDA-Public Use
  Company Number: BW-BRISTOL-MYERS SQUIBB COMPANY-13599618

PATIENT
  Age: 1 Day
  Sex: Female
  Weight: 3 kg

DRUGS (3)
  1. ZERIT [Suspect]
     Route: 064
     Dates: start: 20040601, end: 20050409
  2. EPIVIR [Suspect]
     Route: 064
     Dates: start: 20040601, end: 20050409
  3. VIRAMUNE [Suspect]
     Route: 064
     Dates: start: 20040601, end: 20050409

REACTIONS (4)
  - DRUG EXPOSURE DURING PREGNANCY [None]
  - PREGNANCY [None]
  - UMBILICAL HERNIA [None]
  - VITILIGO [None]
